FAERS Safety Report 8185828-7 (Version None)
Quarter: 2012Q1

REPORT INFORMATION
  Report Type: 
  Country: None (occurrence: None)
  Receive Date: 20120305
  Receipt Date: 20120301
  Transmission Date: 20120608
  Serious: Yes (Other)
  Sender: FDA-Public Use
  Company Number: US-PFIZER INC-2012056004

PATIENT
  Sex: Male
  Weight: 79.365 kg

DRUGS (7)
  1. METOPROLOL TARTRATE [Suspect]
     Dosage: 12.5 MG, UNK
  2. TIKOSYN [Suspect]
     Indication: HEART RATE INCREASED
  3. WARFARIN SODIUM [Concomitant]
     Indication: ANTICOAGULANT THERAPY
     Dosage: 5 MG, DAILY
     Dates: start: 20110204
  4. METOPROLOL TARTRATE [Suspect]
     Dosage: 25 MG, UNK
     Dates: start: 20110204
  5. TIKOSYN [Suspect]
     Indication: ATRIAL FIBRILLATION
     Dosage: 500 UG, 2X/DAY
     Dates: start: 20120213
  6. AMLODIPINE BESILATE [Concomitant]
     Dosage: 10 MG, DAILY
     Dates: start: 20110204
  7. ACETYLSALICYLIC ACID [Concomitant]
     Indication: CARDIAC DISORDER
     Dosage: 81 MG, DAILY
     Dates: start: 20120213

REACTIONS (7)
  - CHEST DISCOMFORT [None]
  - INSOMNIA [None]
  - MENTAL IMPAIRMENT [None]
  - ASTHENIA [None]
  - PAIN IN EXTREMITY [None]
  - DIZZINESS [None]
  - BREAST PAIN [None]
